FAERS Safety Report 5320227-4 (Version None)
Quarter: 2007Q1

REPORT INFORMATION
  Report Type: 
  Country: None (occurrence: None)
  Receive Date: 20070215
  Receipt Date: 20061010
  Transmission Date: 20070707
  Serious: Yes (Life-Threatening, Other)
  Sender: FDA-Public Use
  Company Number: MC200600692

PATIENT
  Age: 77 Year
  Sex: Female

DRUGS (2)
  1. ANGIOMAX [Suspect]
     Indication: PERCUTANEOUS CORONARY INTERVENTION
     Dosage: SINGLE IV BOLUS
     Route: 040
     Dates: start: 20061001, end: 20061001
  2. PLAVIX [Concomitant]

REACTIONS (1)
  - STENT OCCLUSION [None]
